FAERS Safety Report 25132585 (Version 1)
Quarter: 2025Q1

REPORT INFORMATION
  Report Type: Spontaneous
  Country: US (occurrence: US)
  Receive Date: 20250328
  Receipt Date: 20250328
  Transmission Date: 20250408
  Serious: Yes (Hospitalization, Other)
  Sender: UNITED THERAPEUTICS
  Company Number: US-UNITED THERAPEUTICS-UNT-2024-036584

PATIENT
  Sex: Female
  Weight: 68.027 kg

DRUGS (27)
  1. TYVASO DPI [Suspect]
     Active Substance: TREPROSTINIL
     Indication: Pulmonary arterial hypertension
     Dosage: 32 ?G, QID
     Dates: start: 2024, end: 2024
  2. TYVASO DPI [Suspect]
     Active Substance: TREPROSTINIL
     Dosage: 16 ?G, QID
     Dates: start: 2024, end: 2024
  3. TYVASO DPI [Suspect]
     Active Substance: TREPROSTINIL
  4. TYVASO DPI [Suspect]
     Active Substance: TREPROSTINIL
     Indication: Pulmonary arterial hypertension
  5. TYVASO DPI [Suspect]
     Active Substance: TREPROSTINIL
     Indication: Pulmonary arterial hypertension
  6. OFEV [Suspect]
     Active Substance: NINTEDANIB
     Indication: Idiopathic pulmonary fibrosis
     Dosage: 100 MG, Q12H
     Dates: start: 20221227
  7. OFEV [Suspect]
     Active Substance: NINTEDANIB
     Indication: Interstitial lung disease
     Dosage: 150 MG, Q12H
     Dates: start: 20231001
  8. OFEV [Suspect]
     Active Substance: NINTEDANIB
  9. OFEV [Suspect]
     Active Substance: NINTEDANIB
  10. OFEV [Suspect]
     Active Substance: NINTEDANIB
  11. OFEV [Suspect]
     Active Substance: NINTEDANIB
  12. OFEV [Suspect]
     Active Substance: NINTEDANIB
  13. OFEV [Suspect]
     Active Substance: NINTEDANIB
  14. OFEV [Suspect]
     Active Substance: NINTEDANIB
  15. OFEV [Suspect]
     Active Substance: NINTEDANIB
  16. OFEV [Suspect]
     Active Substance: NINTEDANIB
  17. OFEV [Suspect]
     Active Substance: NINTEDANIB
  18. OFEV [Suspect]
     Active Substance: NINTEDANIB
  19. OXYGEN [Suspect]
     Active Substance: OXYGEN
     Indication: Product used for unknown indication
  20. DICLOFENAC SODIUM [Concomitant]
     Active Substance: DICLOFENAC SODIUM
     Indication: Product used for unknown indication
  21. TYLENOL [Concomitant]
     Active Substance: ACETAMINOPHEN
     Indication: Product used for unknown indication
  22. FLONASE ALLERGY RELIEF [Concomitant]
     Active Substance: FLUTICASONE PROPIONATE
     Indication: Product used for unknown indication
  23. BUSPIRONE HCL [Concomitant]
     Active Substance: BUSPIRONE HYDROCHLORIDE
     Indication: Product used for unknown indication
  24. ALENDRONATE SODIUM [Concomitant]
     Active Substance: ALENDRONATE SODIUM
     Indication: Product used for unknown indication
  25. DEXLANSOPRAZOLE [Concomitant]
     Active Substance: DEXLANSOPRAZOLE
     Indication: Product used for unknown indication
  26. ESCITALOPRAM OXALATE [Concomitant]
     Active Substance: ESCITALOPRAM OXALATE
     Indication: Product used for unknown indication
  27. MYCOPHENOLIC ACID [Concomitant]
     Active Substance: MYCOPHENOLIC ACID
     Indication: Product used for unknown indication

REACTIONS (13)
  - Respiratory syncytial virus infection [Recovered/Resolved]
  - Pneumonia [Unknown]
  - Nausea [Unknown]
  - Headache [Unknown]
  - Cough [Recovered/Resolved]
  - Diarrhoea [Not Recovered/Not Resolved]
  - Gastrooesophageal reflux disease [Unknown]
  - Neck pain [Unknown]
  - Decreased appetite [Not Recovered/Not Resolved]
  - Fatigue [Not Recovered/Not Resolved]
  - Weight decreased [Recovering/Resolving]
  - Oxygen saturation decreased [Unknown]
  - Dizziness [Recovered/Resolved]

NARRATIVE: CASE EVENT DATE: 20240101
